FAERS Safety Report 15679077 (Version 1)
Quarter: 2018Q4

REPORT INFORMATION
  Report Type: Spontaneous
  Country: GB (occurrence: GB)
  Receive Date: 20181203
  Receipt Date: 20181203
  Transmission Date: 20190205
  Serious: Yes (Other)
  Sender: FDA-Public Use
  Company Number: GB-AUROBINDO-AUR-APL-2018-057706

PATIENT
  Age: 64 Year
  Sex: Male

DRUGS (3)
  1. SODIUM VALPROATE [Suspect]
     Active Substance: VALPROATE SODIUM
     Indication: EPILEPSY
     Route: 065
  2. MEROPENEM INJECTION [Suspect]
     Active Substance: MEROPENEM
     Indication: PNEUMONIA
     Dosage: PLAN TO CONTINUE FOR 5 DAYS
     Route: 042
     Dates: start: 20180505, end: 20180508
  3. DOXYCYCLINE. [Concomitant]
     Active Substance: DOXYCYCLINE
     Indication: PNEUMONIA
     Dosage: UNK
     Route: 065
     Dates: start: 20180508

REACTIONS (2)
  - Epilepsy [Unknown]
  - Labelled drug-drug interaction medication error [Unknown]

NARRATIVE: CASE EVENT DATE: 20180511
